FAERS Safety Report 24426606 (Version 2)
Quarter: 2024Q4

REPORT INFORMATION
  Report Type: Spontaneous
  Country: US (occurrence: US)
  Receive Date: 20241011
  Receipt Date: 20241011
  Transmission Date: 20250115
  Serious: No
  Sender: ABBVIE
  Company Number: US-ABBVIE-5954719

PATIENT
  Age: 78 Year
  Sex: Male
  Weight: 49.895 kg

DRUGS (2)
  1. RESTASIS [Suspect]
     Active Substance: CYCLOSPORINE
     Indication: Dry eye
     Dosage: 0.05%?FREQUENCY TEXT: ONCE IN THE MORNING AND ONCE AT NIGHT
     Route: 047
     Dates: start: 202407
  2. FLUOROURACIL [Concomitant]
     Active Substance: FLUOROURACIL
     Indication: Basal cell carcinoma
     Dosage: 5%
     Route: 061

REACTIONS (2)
  - Eye irritation [Recovered/Resolved]
  - Off label use [Not Recovered/Not Resolved]

NARRATIVE: CASE EVENT DATE: 20240701
